FAERS Safety Report 8992383 (Version 1)
Quarter: 2012Q4

REPORT INFORMATION
  Report Type: 
  Country: US (occurrence: US)
  Receive Date: 20121231
  Receipt Date: 20121231
  Transmission Date: 20130627
  Serious: Yes (Hospitalization)
  Sender: FDA-Public Use
  Company Number: US-JNJFOC-20121010600

PATIENT
  Age: 54 None
  Sex: Male
  Weight: 108.86 kg

DRUGS (11)
  1. DURAGESIC [Suspect]
     Indication: BACK PAIN
     Route: 062
     Dates: start: 2012
  2. DURAGESIC [Suspect]
     Indication: BACK PAIN
     Route: 062
     Dates: start: 2012
  3. DURAGESIC [Suspect]
     Indication: BACK PAIN
     Dosage: dose to be alternated betweeen 75mcg and 100mcg every 48hours.
     Route: 062
     Dates: start: 2012
  4. DURAGESIC [Suspect]
     Indication: NECK PAIN
     Dosage: dose to be alternated betweeen 75mcg and 100mcg every 48hours.
     Route: 062
     Dates: start: 2012
  5. DURAGESIC [Suspect]
     Indication: NECK PAIN
     Route: 062
     Dates: start: 2012
  6. DURAGESIC [Suspect]
     Indication: NECK PAIN
     Route: 062
     Dates: start: 2012
  7. DURAGESIC [Suspect]
     Indication: MUSCULOSKELETAL PAIN
     Route: 062
     Dates: start: 2012
  8. DURAGESIC [Suspect]
     Indication: MUSCULOSKELETAL PAIN
     Dosage: dose to be alternated betweeen 75mcg and 100mcg every 48hours.
     Route: 062
     Dates: start: 2012
  9. DURAGESIC [Suspect]
     Indication: MUSCULOSKELETAL PAIN
     Route: 062
     Dates: start: 2012
  10. LORTAB [Concomitant]
     Indication: PAIN
     Dosage: 10/500mg/tablet four times

daily/oraL
     Route: 048
     Dates: start: 201207
  11. MELOXICAM [Concomitant]
     Indication: ANTIINFLAMMATORY THERAPY
     Route: 048
     Dates: start: 2009

REACTIONS (6)
  - Intervertebral disc protrusion [Not Recovered/Not Resolved]
  - Drug ineffective [Not Recovered/Not Resolved]
  - Wrong technique in drug usage process [Not Recovered/Not Resolved]
  - Wrong technique in drug usage process [Recovered/Resolved]
  - Product quality issue [Unknown]
  - Product quality issue [Unknown]
